FAERS Safety Report 7675210-0 (Version None)
Quarter: 2011Q3

REPORT INFORMATION
  Report Type: 
  Country: None (occurrence: None)
  Receive Date: 20110810
  Receipt Date: 20110810
  Transmission Date: 20111222
  Serious: Yes (Hospitalization)
  Sender: FDA-Public Use
  Company Number: None

PATIENT
  Sex: Female
  Weight: 77.11 kg

DRUGS (2)
  1. SOLODYN [Suspect]
     Indication: ROSACEA
     Dosage: 1 TABLET
     Route: 048
     Dates: start: 20110802, end: 20110806
  2. VAGIFEM [Concomitant]
     Route: 067

REACTIONS (2)
  - ABDOMINAL PAIN UPPER [None]
  - GASTROINTESTINAL INFLAMMATION [None]
